FAERS Safety Report 25497138 (Version 2)
Quarter: 2025Q3

REPORT INFORMATION
  Report Type: Spontaneous
  Country: EU (occurrence: EU)
  Receive Date: 20250701
  Receipt Date: 20250717
  Transmission Date: 20251021
  Serious: Yes (Other)
  Sender: AUROBINDO
  Company Number: EU-RECORDATI-2025004203

PATIENT
  Age: 52 Year
  Sex: Male

DRUGS (3)
  1. RAMIPRIL [Suspect]
     Active Substance: RAMIPRIL
     Route: 048
     Dates: start: 2015
  2. HYDROCHLOROTHIAZIDE\METOPROLOL SUCCINATE [Suspect]
     Active Substance: HYDROCHLOROTHIAZIDE\METOPROLOL SUCCINATE
     Indication: Hypertension
     Route: 048
  3. METOPROLOL SUCCINATE [Suspect]
     Active Substance: METOPROLOL SUCCINATE
     Indication: Hypertension
     Route: 065

REACTIONS (5)
  - Overweight [Not Recovered/Not Resolved]
  - Arrhythmia [Unknown]
  - Hepatic fibrosis [Recovered/Resolved]
  - Hypertension [Recovered/Resolved]
  - Thyroid cancer [Recovered/Resolved]

NARRATIVE: CASE EVENT DATE: 20160101
